FAERS Safety Report 15255514 (Version 1)
Quarter: 2018Q3

REPORT INFORMATION
  Report Type: Spontaneous
  Country: FR (occurrence: FR)
  Receive Date: 20180808
  Receipt Date: 20180808
  Transmission Date: 20181010
  Serious: Yes (Death, Hospitalization, Other)
  Sender: FDA-Public Use
  Company Number: FR-TELIGENT, INC-IGIL20180425

PATIENT
  Age: 86 Year
  Sex: Female

DRUGS (5)
  1. VANCOMYCINE [Suspect]
     Active Substance: VANCOMYCIN
     Indication: MEDICAL DEVICE SITE JOINT INFECTION
     Dosage: UNKNOWN
     Route: 042
     Dates: start: 20160520, end: 20160523
  2. COLIMYCINE [Suspect]
     Active Substance: COLISTIMETHATE SODIUM
     Indication: MEDICAL DEVICE SITE JOINT INFECTION
     Dosage: UNKNOWN
     Route: 042
     Dates: start: 20160525, end: 20160531
  3. CEFEPIME [Suspect]
     Active Substance: CEFEPIME HYDROCHLORIDE
     Indication: MEDICAL DEVICE SITE JOINT INFECTION
     Dosage: UNKNOWN
     Route: 042
     Dates: start: 20160525, end: 20160531
  4. CEFTAZIDIME SODIUM [Suspect]
     Active Substance: CEFTAZIDIME SODIUM
     Indication: MEDICAL DEVICE SITE JOINT INFECTION
     Dosage: UNKNOWN
     Route: 042
     Dates: start: 20160523, end: 20160525
  5. AMIKACIN SULFATE. [Suspect]
     Active Substance: AMIKACIN SULFATE
     Indication: MEDICAL DEVICE SITE JOINT INFECTION
     Dosage: UNKNOWN
     Route: 042
     Dates: start: 20160523, end: 20160531

REACTIONS (2)
  - Acute kidney injury [Fatal]
  - Postoperative wound infection [Fatal]

NARRATIVE: CASE EVENT DATE: 20160531
